FAERS Safety Report 13713893 (Version 1)
Quarter: 2017Q3

REPORT INFORMATION
  Report Type: Spontaneous
  Country: IT (occurrence: IT)
  Receive Date: 20170704
  Receipt Date: 20170704
  Transmission Date: 20171127
  Serious: Yes (Hospitalization, Other)
  Sender: FDA-Public Use
  Company Number: IT-LUPIN PHARMACEUTICALS INC.-2017-03508

PATIENT
  Age: 62 Year
  Sex: Male

DRUGS (7)
  1. VANCOMYCIN [Suspect]
     Active Substance: VANCOMYCIN
     Indication: DIARRHOEA
     Dosage: 250 MG, EVERY 6 HOURS
     Route: 048
  2. TIGECYCLINE. [Suspect]
     Active Substance: TIGECYCLINE
     Indication: DIARRHOEA
     Dosage: 50 MG, EVERY 12 HOURS, (FL E.V)
     Route: 065
  3. CEFTAZIDIME. [Suspect]
     Active Substance: CEFTAZIDIME
     Indication: URINARY TRACT INFECTION
     Dosage: UNK
     Route: 065
     Dates: start: 201604
  4. METRONIDAZOLE. [Concomitant]
     Active Substance: METRONIDAZOLE
     Indication: DIARRHOEA
     Dosage: 500 MG, EVERY 6 HOURS
     Route: 065
  5. FIDAXOMICIN [Suspect]
     Active Substance: FIDAXOMICIN
     Indication: DIARRHOEA
     Dosage: 200 MG, EVERY 12 HOURS
  6. METRONIDAZOLE. [Concomitant]
     Active Substance: METRONIDAZOLE
     Dosage: 500 MG, EVERY 6 HOURS
     Route: 048
  7. CIPROFLOXACIN. [Suspect]
     Active Substance: CIPROFLOXACIN
     Indication: PROPHYLAXIS
     Dosage: UNK
     Route: 065
     Dates: start: 201604

REACTIONS (5)
  - Pseudomembranous colitis [Recovered/Resolved]
  - Septic shock [Recovered/Resolved]
  - Meningitis listeria [Unknown]
  - Listeriosis [Unknown]
  - Coma [Recovered/Resolved]

NARRATIVE: CASE EVENT DATE: 201605
